FAERS Safety Report 10619648 (Version 2)
Quarter: 2015Q2

REPORT INFORMATION
  Report Type: Spontaneous
  Country: US (occurrence: US)
  Receive Date: 20141202
  Receipt Date: 20150403
  Transmission Date: 20150821
  Serious: Yes (Life-Threatening, Hospitalization, Congenital Anomaly, Other)
  Sender: FDA-Public Use
  Company Number: US-ELI_LILLY_AND_COMPANY-US201411010126

PATIENT

DRUGS (1)
  1. PROZAC [Suspect]
     Active Substance: FLUOXETINE HYDROCHLORIDE
     Indication: PRODUCT USED FOR UNKNOWN INDICATION
     Dosage: UNK, UNKNOWN
     Route: 064

REACTIONS (12)
  - Neonatal hypoxia [Unknown]
  - Metabolic acidosis [Unknown]
  - Patent ductus arteriosus [Unknown]
  - Premature baby [Unknown]
  - Jaundice neonatal [Unknown]
  - Foetal exposure during pregnancy [Unknown]
  - Low birth weight baby [Unknown]
  - Bradycardia [Unknown]
  - Anaemia neonatal [Unknown]
  - Neonatal respiratory distress syndrome [Unknown]
  - Escherichia sepsis [Unknown]
  - White blood cell count decreased [Unknown]
